FAERS Safety Report 19048255 (Version 6)
Quarter: 2022Q1

REPORT INFORMATION
  Report Type: Report from Study
  Country: US (occurrence: US)
  Receive Date: 20210323
  Receipt Date: 20220331
  Transmission Date: 20220423
  Serious: Yes (Hospitalization, Other)
  Sender: FDA-Public Use
  Company Number: US-TAKEDA-US202015633

PATIENT
  Sex: Female

DRUGS (1)
  1. HUMAN IMMUNOGLOBULIN G [Suspect]
     Active Substance: HUMAN IMMUNOGLOBULIN G
     Indication: Primary immunodeficiency syndrome
     Dosage: UNK
     Route: 042

REACTIONS (16)
  - Hip arthroplasty [Unknown]
  - Pericardial effusion [Unknown]
  - Infusion related reaction [Recovered/Resolved]
  - Arthritis [Unknown]
  - Bronchitis [Unknown]
  - Limb discomfort [Unknown]
  - Illness [Unknown]
  - Migraine [Unknown]
  - Pyrexia [Recovered/Resolved]
  - Headache [Recovered/Resolved]
  - Nausea [Recovered/Resolved]
  - Malaise [Unknown]
  - Fatigue [Unknown]
  - Inability to afford medication [Unknown]
  - Oropharyngeal pain [Unknown]
  - Dyspnoea [Unknown]
